FAERS Safety Report 8549774-9 (Version None)
Quarter: 2012Q3

REPORT INFORMATION
  Report Type: 
  Country: None (occurrence: None)
  Receive Date: 20120730
  Receipt Date: 20120719
  Transmission Date: 20120928
  Serious: Yes (Hospitalization, Other)
  Sender: FDA-Public Use
  Company Number: GB-ASTRAZENECA-2012SE51079

PATIENT
  Age: 70 Year
  Sex: Female
  Weight: 72.2 kg

DRUGS (2)
  1. QUETIAPINE [Suspect]
     Indication: MAJOR DEPRESSION
     Route: 048
     Dates: start: 20120518, end: 20120527
  2. AMISULPRIDE [Concomitant]
     Indication: MAJOR DEPRESSION
     Route: 048
     Dates: start: 20120419, end: 20120629

REACTIONS (3)
  - RASH MACULO-PAPULAR [None]
  - RASH GENERALISED [None]
  - CONJUNCTIVAL DISORDER [None]
